FAERS Safety Report 9160061 (Version 1)
Quarter: 2013Q1

REPORT INFORMATION
  Report Type: Spontaneous
  Country: US (occurrence: US)
  Receive Date: 20130313
  Receipt Date: 20130313
  Transmission Date: 20140127
  Serious: No
  Sender: FDA-Public Use
  Company Number: US-BAYER-2013-024958

PATIENT
  Sex: Male

DRUGS (1)
  1. LEVITRA [Suspect]
     Dosage: 20 MG, UNK
     Dates: start: 201212

REACTIONS (4)
  - Product quality issue [None]
  - Flushing [None]
  - Headache [None]
  - Drug ineffective [None]
